FAERS Safety Report 9269829 (Version 1)
Quarter: 2013Q2

REPORT INFORMATION
  Report Type: Report from Study
  Country: CA (occurrence: CA)
  Receive Date: 20130503
  Receipt Date: 20130503
  Transmission Date: 20140414
  Serious: Yes (Other)
  Sender: FDA-Public Use
  Company Number: CA-JNJFOC-20130416155

PATIENT
  Age: 55 Year
  Sex: Male
  Weight: 79.83 kg

DRUGS (1)
  1. REMICADE [Suspect]
     Indication: RHEUMATOID ARTHRITIS
     Route: 042

REACTIONS (3)
  - Gait disturbance [Unknown]
  - Pain in extremity [Unknown]
  - Local swelling [Unknown]
